FAERS Safety Report 23595319 (Version 1)
Quarter: 2024Q1

REPORT INFORMATION
  Report Type: Spontaneous
  Country: AT (occurrence: None)
  Receive Date: 20240305
  Receipt Date: 20240305
  Transmission Date: 20240410
  Serious: Yes (Hospitalization, Other)
  Sender: FDA-Public Use
  Company Number: 2024A050380

PATIENT
  Age: 43 Year
  Sex: Male

DRUGS (3)
  1. BENRALIZUMAB [Suspect]
     Active Substance: BENRALIZUMAB
     Route: 058
  2. FORMOTEROL [Suspect]
     Active Substance: FORMOTEROL
     Dosage: 1280 MCG BUDESONID/DAY
  3. THEOPHYLLINE [Concomitant]
     Active Substance: THEOPHYLLINE
     Indication: Product used for unknown indication

REACTIONS (2)
  - Respiratory failure [Unknown]
  - Influenza [Unknown]
